FAERS Safety Report 8096907-7 (Version None)
Quarter: 2012Q1

REPORT INFORMATION
  Report Type: 
  Country: None (occurrence: None)
  Receive Date: 20120129
  Receipt Date: 20111107
  Transmission Date: 20120608
  Serious: No
  Sender: FDA-Public Use
  Company Number: US-ABBOTT-11P-163-0872186-00

PATIENT
  Sex: Female
  Weight: 65.83 kg

DRUGS (8)
  1. KARIVA [Concomitant]
     Indication: CONTRACEPTION
  2. HUMIRA [Suspect]
     Indication: COLITIS ULCERATIVE
     Dates: start: 20110125
  3. REMERON [Concomitant]
     Indication: DEPRESSION
  4. AMBIEN [Concomitant]
     Indication: SLEEP DISORDER THERAPY
  5. WELLBUTRIN [Concomitant]
     Indication: DEPRESSION
  6. DOXYCYCLINE [Concomitant]
     Indication: ACNE
  7. KLONOPIN [Concomitant]
     Indication: DEPRESSION
  8. KLONOPIN [Concomitant]
     Indication: ANXIETY

REACTIONS (7)
  - OFF LABEL USE [None]
  - NASOPHARYNGITIS [None]
  - SNEEZING [None]
  - PYREXIA [None]
  - ALOPECIA [None]
  - OROPHARYNGEAL PAIN [None]
  - COLITIS ULCERATIVE [None]
